FAERS Safety Report 10081106 (Version 1)
Quarter: 2014Q2

REPORT INFORMATION
  Report Type: Spontaneous
  Country: ES (occurrence: None)
  Receive Date: 20140414
  Receipt Date: 20140414
  Transmission Date: 20141212
  Serious: Yes (Hospitalization)
  Sender: FDA-Public Use
  Company Number: 2014ES0174

PATIENT
  Age: 58 Year
  Sex: Male

DRUGS (5)
  1. KINERET [Suspect]
     Indication: GOUT
     Dosage: 100-2
     Route: 058
     Dates: start: 201401, end: 201401
  2. ADENURIC [Suspect]
     Indication: GOUT
     Route: 048
     Dates: start: 201401
  3. TACROLIMUS [Suspect]
     Indication: PROPHYLAXIS AGAINST TRANSPLANT REJECTION
     Dates: start: 20140225
  4. SIMULECT(BASILIXIMAB) [Concomitant]
  5. HUMAN G IMMUNOGLOBULIN(IMMUNOGLOBULIN HUMAN NORMAL) [Concomitant]

REACTIONS (5)
  - Transplant rejection [None]
  - Thrombotic microangiopathy [None]
  - Thrombocytopenia [None]
  - Anaemia [None]
  - Renal transplant [None]
